FAERS Safety Report 10563773 (Version 2)
Quarter: 2014Q4

REPORT INFORMATION
  Report Type: Spontaneous
  Country: US (occurrence: US)
  Receive Date: 20141104
  Receipt Date: 20141205
  Transmission Date: 20150529
  Serious: No
  Sender: FDA-Public Use
  Company Number: US-GLAXOSMITHKLINE-US2014GSK015488

PATIENT
  Age: 78 Year
  Sex: Male
  Weight: 79.37 kg

DRUGS (5)
  1. ALBUTEROL. [Concomitant]
     Active Substance: ALBUTEROL
  2. LASIX [Concomitant]
     Active Substance: FUROSEMIDE
  3. BREO ELLIPTA [Suspect]
     Active Substance: FLUTICASONE FUROATE\VILANTEROL TRIFENATATE
     Indication: CHRONIC OBSTRUCTIVE PULMONARY DISEASE
     Dosage: 100 MG, QD
     Route: 055
     Dates: start: 20140619, end: 20140717
  4. LISINOPRIL. [Concomitant]
     Active Substance: LISINOPRIL
  5. COREG [Concomitant]
     Active Substance: CARVEDILOL

REACTIONS (1)
  - Nausea [Unknown]

NARRATIVE: CASE EVENT DATE: 20140619
